FAERS Safety Report 14909285 (Version 1)
Quarter: 2018Q2

REPORT INFORMATION
  Report Type: Spontaneous
  Country: US (occurrence: US)
  Receive Date: 20180517
  Receipt Date: 20180517
  Transmission Date: 20180711
  Serious: No
  Sender: FDA-Public Use
  Company Number: US-PFIZER INC-2018197125

PATIENT
  Age: 10 Year
  Sex: Female

DRUGS (1)
  1. QUILLICHEW ER [Suspect]
     Active Substance: METHYLPHENIDATE HYDROCHLORIDE
     Dosage: 9.5 UNK
     Dates: start: 201701

REACTIONS (7)
  - Irritability [Unknown]
  - Sensory processing disorder [Unknown]
  - Mania [Unknown]
  - Psychiatric symptom [Unknown]
  - Feeling abnormal [Unknown]
  - Thinking abnormal [Unknown]
  - Loss of personal independence in daily activities [Unknown]
